FAERS Safety Report 5849547-1 (Version None)
Quarter: 2008Q3

REPORT INFORMATION
  Report Type: 
  Country: None (occurrence: None)
  Receive Date: 20080819
  Receipt Date: 20080814
  Transmission Date: 20090109
  Serious: Yes (Other)
  Sender: FDA-Public Use
  Company Number: D0058277A

PATIENT
  Age: 66 Year
  Sex: Female
  Weight: 54 kg

DRUGS (2)
  1. HYCAMTIN [Suspect]
     Indication: METASTASES TO REPRODUCTIVE ORGAN
     Route: 065
     Dates: start: 20080723, end: 20080723
  2. METAMIZOL [Concomitant]
     Indication: PAIN
     Dosage: 15DROP THREE TIMES PER DAY
     Route: 065

REACTIONS (4)
  - HAEMATOTOXICITY [None]
  - LEUKOPENIA [None]
  - THROMBOCYTOPENIA [None]
  - URINARY TRACT DISORDER [None]
